FAERS Safety Report 12242096 (Version 1)
Quarter: 2016Q2

REPORT INFORMATION
  Report Type: Spontaneous
  Country: FR (occurrence: FR)
  Receive Date: 20160406
  Receipt Date: 20160406
  Transmission Date: 20160815
  Serious: Yes (Hospitalization)
  Sender: FDA-Public Use
  Company Number: FR-009507513-1604FRA002599

PATIENT
  Age: 85 Year
  Sex: Female

DRUGS (4)
  1. EUPANTOL [Suspect]
     Active Substance: PANTOPRAZOLE SODIUM
     Indication: PROPHYLAXIS
     Dosage: 20 MG, QD
     Dates: start: 20160218
  2. NOROXINE [Suspect]
     Active Substance: NORFLOXACIN
     Indication: INFECTION
     Dosage: 400 MG, QD
     Route: 048
     Dates: start: 20160220, end: 20160306
  3. COLCHICINE. [Suspect]
     Active Substance: COLCHICINE
     Dosage: 1 MG, QD
     Dates: start: 20160223, end: 20160303
  4. COLCHICINE. [Suspect]
     Active Substance: COLCHICINE
     Indication: GOUT
     Dosage: 2 MG, QD
     Dates: start: 20160222, end: 20160222

REACTIONS (2)
  - Hepatocellular injury [Recovering/Resolving]
  - Disseminated intravascular coagulation [Recovering/Resolving]

NARRATIVE: CASE EVENT DATE: 20160311
